FAERS Safety Report 15520081 (Version 1)
Quarter: 2018Q4

REPORT INFORMATION
  Report Type: Spontaneous
  Country: US (occurrence: US)
  Receive Date: 20181017
  Receipt Date: 20181017
  Transmission Date: 20190205
  Serious: Yes (Other)
  Sender: FDA-Public Use
  Company Number: US-FRESENIUS KABI-FK201810703

PATIENT
  Age: 66 Year
  Sex: Female
  Weight: 74.8 kg

DRUGS (1)
  1. DIPRIVAN [Suspect]
     Active Substance: PROPOFOL
     Indication: INDUCTION OF ANAESTHESIA
     Dosage: PRIOR TO THE USE OF THIS MEDICATION, THE VIALS WERE SHAKEN AS PER INSTRUCTION ON THE BOTTLE AND THER
     Route: 040
     Dates: start: 20181008, end: 20181008

REACTIONS (1)
  - Drug effect delayed [Unknown]

NARRATIVE: CASE EVENT DATE: 20181008
